FAERS Safety Report 20191376 (Version 1)
Quarter: 2021Q4

REPORT INFORMATION
  Report Type: Spontaneous
  Country: US (occurrence: US)
  Receive Date: 20211216
  Receipt Date: 20211216
  Transmission Date: 20220303
  Serious: Yes (Other)
  Sender: FDA-Public Use
  Company Number: US-NOVARTISTESTPH-NVSC2021US278416

PATIENT
  Sex: Female

DRUGS (2)
  1. FOCALIN XR [Suspect]
     Active Substance: DEXMETHYLPHENIDATE HYDROCHLORIDE
     Indication: Product used for unknown indication
     Dosage: 5 MG, QD
     Route: 065
     Dates: start: 20211028, end: 20211117
  2. SEROQUEL [Concomitant]
     Active Substance: QUETIAPINE FUMARATE
     Indication: Sleep disorder
     Dosage: 50 MG, QD (ONCE NIGHTLY)
     Route: 065

REACTIONS (4)
  - Hallucinations, mixed [Unknown]
  - Psychotic disorder [Unknown]
  - Muscle twitching [Unknown]
  - DiGeorge^s syndrome [Unknown]
